FAERS Safety Report 9529787 (Version 1)
Quarter: 2013Q2

REPORT INFORMATION
  Report Type: Spontaneous
  Country: US (occurrence: None)
  Receive Date: 20130402
  Receipt Date: 20130402
  Transmission Date: 20140414
  Serious: Yes (Hospitalization, Other)
  Sender: FDA-Public Use
  Company Number: RB-48744-2013

PATIENT
  Age: 0 Day
  Sex: Male

DRUGS (4)
  1. SUBOXONE [Suspect]
     Indication: DRUG DEPENDENCE
     Dosage: SUBOXONE FILM; DOSING DETAILS UNKNOWN TRANSPLACENTAL
     Route: 064
     Dates: end: 20120831
  2. SUBUTEX [Suspect]
     Indication: DRUG DEPENDENCE
     Dosage: 24 MG TRANSPLACETAL
     Route: 064
     Dates: start: 20120831
  3. NICOTINE [Suspect]
     Indication: PRODUCT USED FOR UNKNOWN INDICATION
     Dosage: DOSING DETAILS UNKNOWN TRANSPLACENTAL
     Route: 064
  4. BUPRENORPHINE [Suspect]
     Indication: DRUG DEPENDENCE
     Dosage: DOSAGE DETAILS UNKNOWN TRANSPLACENTAL
     Route: 064

REACTIONS (3)
  - Drug withdrawal syndrome neonatal [None]
  - Foetal exposure during pregnancy [None]
  - Exposure during breast feeding [None]
